FAERS Safety Report 9646211 (Version 1)
Quarter: 2013Q4

REPORT INFORMATION
  Report Type: Spontaneous
  Country: GB (occurrence: None)
  Receive Date: 20131024
  Receipt Date: 20131024
  Transmission Date: 20140711
  Serious: Yes (Other)
  Sender: FDA-Public Use
  Company Number: AUR-APL-2013-08642

PATIENT
  Sex: Male

DRUGS (3)
  1. RIBAVIRIN (RIBAVIRIN) [Suspect]
     Indication: HEPATITIS C
     Dosage: 2 IN 1 D, ORAL
     Route: 048
     Dates: start: 20130206
  2. PEGINTERFERON ALFA-2A [Suspect]
     Indication: HEPATITIS C
     Dosage: 1 IN 1 WK, SC
     Route: 058
     Dates: start: 20130206
  3. INCIVO (TELAPREVIR) [Suspect]
     Indication: HEPATITIS C
     Dosage: 2250 MG (750 MG, 3 IN 1 D), ORAL
     Route: 048
     Dates: start: 20130206

REACTIONS (6)
  - Depressed mood [None]
  - Lethargy [None]
  - Thirst [None]
  - Sleep disorder [None]
  - Anaemia [None]
  - Dyspnoea [None]
